FAERS Safety Report 8772980 (Version 1)
Quarter: 2012Q4

REPORT INFORMATION
  Report Type: 
  Country: AR (occurrence: AR)
  Receive Date: 20120907
  Receipt Date: 20120907
  Transmission Date: 20130627
  Serious: Yes (Hospitalization, Other)
  Sender: FDA-Public Use
  Company Number: PHHY2012AR077612

PATIENT
  Sex: Male

DRUGS (2)
  1. GALVUS MET [Suspect]
     Indication: DIABETES MELLITUS
     Dosage: 2 DF(850 mg metf and 50 mg vilda), daily
  2. DIOVAN [Suspect]
     Indication: HYPERTENSION
     Dosage: 160 mg, daily

REACTIONS (1)
  - Carotid artery occlusion [Recovered/Resolved]
